FAERS Safety Report 24275407 (Version 1)
Quarter: 2024Q3

REPORT INFORMATION
  Report Type: Spontaneous
  Country: FR (occurrence: FR)
  Receive Date: 20240903
  Receipt Date: 20240903
  Transmission Date: 20241016
  Serious: Yes (Other)
  Sender: CELLTRION
  Company Number: None

PATIENT

DRUGS (3)
  1. RITUXIMAB [Suspect]
     Active Substance: RITUXIMAB
     Indication: Tumour lysis syndrome
     Dosage: UNK
     Dates: start: 2020, end: 202005
  2. CYCLOPHOSPHAMIDE [Suspect]
     Active Substance: CYCLOPHOSPHAMIDE
     Indication: Tumour lysis syndrome
     Dosage: UNK
     Dates: start: 2020, end: 202005
  3. FLUDARABINE [Suspect]
     Active Substance: FLUDARABINE PHOSPHATE
     Indication: Tumour lysis syndrome
     Dosage: UNK
     Dates: start: 2020, end: 202005

REACTIONS (2)
  - Dilated cardiomyopathy [Not Recovered/Not Resolved]
  - Intentional product use issue [Unknown]
